FAERS Safety Report 8003804-1 (Version None)
Quarter: 2011Q4

REPORT INFORMATION
  Report Type: 
  Country: None (occurrence: None)
  Receive Date: 20111222
  Receipt Date: 20111215
  Transmission Date: 20120403
  Serious: Yes (Other)
  Sender: FDA-Public Use
  Company Number: IT-GILEAD-2011-0048159

PATIENT
  Age: 67 Year
  Sex: Male

DRUGS (17)
  1. TOPIRAMATE [Concomitant]
     Dosage: 15 MG, BID
  2. AMITRIPTYLINE HCL [Concomitant]
  3. TEGRETOL [Concomitant]
     Dosage: 200 MG, QD
  4. GLYCERYL TRINITRATE [Concomitant]
  5. CLOPIDOGREL [Concomitant]
     Dosage: 25 MG, QD
  6. ATENOLOL [Concomitant]
  7. ACETAMINOPHEN AND CODEINE PHOSPHATE [Concomitant]
     Indication: ANALGESIC THERAPY
  8. GABAPENTIN [Concomitant]
  9. RANOLAZINE [Suspect]
     Indication: PRODUCT USED FOR UNKNOWN INDICATION
     Dosage: 375 MG, BID
     Dates: start: 20110912, end: 20111128
  10. ISOSORBIDE MONONITRATE [Concomitant]
     Dosage: 30 MG, QD
  11. NICORANDIL [Concomitant]
     Dosage: 20 MG, QD
  12. TOPIRAMATE [Concomitant]
     Dosage: 100 MG, QD
  13. RANOLAZINE [Suspect]
     Dosage: 375 MG, BID
  14. ATORVASTATIN [Concomitant]
  15. TAMSULOSIN HCL [Concomitant]
  16. AMLODIPINE [Concomitant]
  17. TRAMADOL HCL [Concomitant]

REACTIONS (5)
  - MUSCULOSKELETAL STIFFNESS [None]
  - SENSATION OF PRESSURE [None]
  - LOSS OF CONSCIOUSNESS [None]
  - FALL [None]
  - HYPOAESTHESIA [None]
